FAERS Safety Report 10039255 (Version 2)
Quarter: 2014Q3

REPORT INFORMATION
  Report Type: Spontaneous
  Country: DE (occurrence: DE)
  Receive Date: 20140326
  Receipt Date: 20140912
  Transmission Date: 20150326
  Serious: Yes (Hospitalization, Disabling)
  Sender: FDA-Public Use
  Company Number: PHHY2014DE035260

PATIENT
  Age: 49 Year
  Sex: Male
  Weight: 66 kg

DRUGS (3)
  1. GILENYA [Suspect]
     Active Substance: FINGOLIMOD HYDROCHLORIDE
     Indication: MULTIPLE SCLEROSIS
     Dosage: 0.5 MG, QD
     Route: 048
     Dates: start: 201208, end: 201402
  2. GABAPENTIN. [Concomitant]
     Active Substance: GABAPENTIN
     Indication: NEURALGIA
     Dosage: 300 MG, TID
     Route: 048
  3. CAPROS [Concomitant]
     Dosage: 20 MG, TID
     Route: 048

REACTIONS (35)
  - C-reactive protein increased [Unknown]
  - Pubis fracture [Unknown]
  - Fall [Unknown]
  - Cardiomegaly [Unknown]
  - Mediastinal disorder [Unknown]
  - Haemoglobin decreased [Unknown]
  - Mean cell volume increased [Unknown]
  - Blood magnesium decreased [Unknown]
  - Insomnia [Unknown]
  - Amnestic disorder [Unknown]
  - Protein urine present [Unknown]
  - Blood urea increased [Unknown]
  - Memory impairment [Unknown]
  - Bladder disorder [Unknown]
  - Aspartate aminotransferase increased [Unknown]
  - Gait disturbance [Unknown]
  - Paresis [Unknown]
  - Red blood cell count decreased [Unknown]
  - Haematocrit decreased [Unknown]
  - Plasma cell myeloma [Recovered/Resolved with Sequelae]
  - Pelvic pain [Unknown]
  - Immobile [Unknown]
  - Paraesthesia [Unknown]
  - Nystagmus [Unknown]
  - Blood lactate dehydrogenase increased [Unknown]
  - General physical health deterioration [Unknown]
  - Blood sodium decreased [Unknown]
  - Blood calcium decreased [Unknown]
  - Weight decreased [Unknown]
  - Alanine aminotransferase increased [Unknown]
  - Glomerular filtration rate increased [Unknown]
  - Saccadic eye movement [Unknown]
  - Psychomotor retardation [Unknown]
  - Pain in extremity [Unknown]
  - White blood cell count decreased [Unknown]

NARRATIVE: CASE EVENT DATE: 201402
